FAERS Safety Report 17549121 (Version 3)
Quarter: 2020Q2

REPORT INFORMATION
  Report Type: Spontaneous
  Country: DE (occurrence: DE)
  Receive Date: 20200317
  Receipt Date: 20200602
  Transmission Date: 20200713
  Serious: Yes (Other)
  Sender: FDA-Public Use
  Company Number: DE-BAUSCH-BL-2020-007564

PATIENT
  Age: 15 Year
  Sex: Male
  Weight: 60 kg

DRUGS (3)
  1. CYCLOPENTOLATE. [Interacting]
     Active Substance: CYCLOPENTOLATE
     Indication: CYCLOPLEGIA
  2. NOVALGIN (METAMIZOLE SODIUM) [Interacting]
     Active Substance: METAMIZOLE SODIUM
     Indication: HEADACHE
     Route: 048
     Dates: start: 20200220, end: 20200220
  3. CYCLOPENTOLATE. [Suspect]
     Active Substance: CYCLOPENTOLATE
     Indication: MYDRIASIS
     Route: 065

REACTIONS (6)
  - Loss of consciousness [Recovered/Resolved]
  - Headache [Recovered/Resolved]
  - Hyperventilation [Recovered/Resolved]
  - Drug interaction [Recovered/Resolved]
  - Condition aggravated [Recovered/Resolved]
  - Respiration abnormal [Recovered/Resolved]

NARRATIVE: CASE EVENT DATE: 20200220
